FAERS Safety Report 5843307-3 (Version None)
Quarter: 2008Q3

REPORT INFORMATION
  Report Type: 
  Country: None (occurrence: None)
  Receive Date: 20080813
  Receipt Date: 20080604
  Transmission Date: 20090109
  Serious: No
  Sender: FDA-Public Use
  Company Number: US-BAYER-200812700BCC

PATIENT
  Age: 54 Year
  Sex: Female
  Weight: 59 kg

DRUGS (5)
  1. ALEVE [Suspect]
     Indication: NECK PAIN
     Dosage: TOTAL DAILY DOSE: 220 MG  UNIT DOSE: 220 MG
     Route: 048
     Dates: start: 20080604
  2. FLINTSTONES [Concomitant]
  3. ASCORBIC ACID [Concomitant]
  4. VIACTIV [Concomitant]
  5. ASPIRIN [Concomitant]

REACTIONS (1)
  - ORAL DISCOMFORT [None]
